FAERS Safety Report 26077635 (Version 1)
Quarter: 2025Q4

REPORT INFORMATION
  Report Type: Spontaneous
  Country: EU (occurrence: EU)
  Receive Date: 20251122
  Receipt Date: 20251122
  Transmission Date: 20260118
  Serious: Yes (Hospitalization)
  Sender: EPIC PHARM
  Company Number: EU-EPICPHARMA-DE-2025EPCLIT01214

PATIENT
  Age: 11 Year
  Sex: Male
  Weight: 35 kg

DRUGS (2)
  1. LEVETIRACETAM [Suspect]
     Active Substance: LEVETIRACETAM
     Indication: Seizure
     Dosage: LOADING DOSE OVER 30 MINUTES, DILUTED IN SODIUM CHLORIDE 0.9%
     Route: 042
  2. LEVETIRACETAM [Suspect]
     Active Substance: LEVETIRACETAM
     Dosage: MAINTENANCE DOSE OVER 30 MINUTES, DILUTED IN SODIUM CHLORIDE 0.9%
     Route: 042

REACTIONS (1)
  - Metabolic acidosis [Recovered/Resolved]
